FAERS Safety Report 5639999-4 (Version None)
Quarter: 2008Q1

REPORT INFORMATION
  Report Type: 
  Country: None (occurrence: None)
  Receive Date: 20080227
  Receipt Date: 20080206
  Transmission Date: 20080703
  Serious: No
  Sender: FDA-Public Use
  Company Number: US-BAYER-200813488NA

PATIENT
  Age: 42 Year
  Sex: Female
  Weight: 57 kg

DRUGS (3)
  1. YAZ [Suspect]
     Indication: MENORRHAGIA
     Route: 048
     Dates: start: 20080203
  2. CLONAZEPAM [Concomitant]
     Indication: ANXIETY
     Route: 048
  3. REMERON [Concomitant]
     Indication: INSOMNIA
     Route: 048

REACTIONS (2)
  - FEELING ABNORMAL [None]
  - NAUSEA [None]
